FAERS Safety Report 5994797-7 (Version None)
Quarter: 2008Q4

REPORT INFORMATION
  Report Type: 
  Country: None (occurrence: None)
  Receive Date: 20081212
  Receipt Date: 20080915
  Transmission Date: 20090506
  Serious: Yes (Hospitalization)
  Sender: FDA-Public Use
  Company Number: US-ABBOTT-08P-163-0476309-00

PATIENT
  Sex: Female
  Weight: 90.8 kg

DRUGS (2)
  1. HUMIRA [Suspect]
     Indication: PSORIATIC ARTHROPATHY
     Route: 058
     Dates: start: 20080201, end: 20080701
  2. WARFARIN SODIUM [Concomitant]
     Indication: ANTICOAGULANT THERAPY
     Dosage: 5MG TAB, 4 WEEKLY, .5MG TAB, 3 WEEKLY ALTERNATING WITH 0.5 MG TAB 3 DAYS A WEEK
     Route: 048
     Dates: start: 20070201

REACTIONS (5)
  - ARTHRALGIA [None]
  - DIZZINESS [None]
  - NAUSEA [None]
  - PYREXIA [None]
  - STREPTOCOCCAL INFECTION [None]
